FAERS Safety Report 7851397-1 (Version None)
Quarter: 2011Q4

REPORT INFORMATION
  Report Type: 
  Country: None (occurrence: None)
  Receive Date: 20111026
  Receipt Date: 20111017
  Transmission Date: 20120403
  Serious: Yes (Other)
  Sender: FDA-Public Use
  Company Number: US-JNJFOC-20110911304

PATIENT
  Sex: Female
  Weight: 79.83 kg

DRUGS (12)
  1. ASPIRIN [Concomitant]
     Indication: THROMBOSIS
     Route: 048
     Dates: start: 20090101
  2. ELMIRON [Suspect]
     Route: 048
     Dates: start: 20111001
  3. PREMARIN [Concomitant]
     Indication: HOT FLUSH
     Route: 048
     Dates: start: 19800101
  4. ATENOLOL [Concomitant]
     Indication: HEART RATE DECREASED
     Route: 048
     Dates: start: 20100101
  5. PLAVIX [Concomitant]
     Indication: THROMBOSIS
     Route: 048
     Dates: start: 20030101
  6. PRILOSEC [Concomitant]
     Indication: DYSPEPSIA
     Route: 048
  7. LIPITOR [Concomitant]
     Indication: BLOOD CHOLESTEROL
     Route: 048
     Dates: start: 20020101
  8. ELMIRON [Suspect]
     Indication: CYSTITIS INTERSTITIAL
     Route: 048
     Dates: start: 20110101, end: 20110601
  9. ELMIRON [Suspect]
     Route: 048
     Dates: start: 20110601, end: 20110922
  10. TRUVADA [Concomitant]
     Indication: HIV INFECTION
     Route: 048
     Dates: start: 20030101
  11. VIRAMUNE [Concomitant]
     Indication: HIV INFECTION
     Route: 048
     Dates: start: 20030101
  12. LEVOTHYROXINE SODIUM [Concomitant]
     Indication: THYROID DISORDER
     Route: 048
     Dates: start: 20020101

REACTIONS (19)
  - DRUG INEFFECTIVE [None]
  - FEELING ABNORMAL [None]
  - INSOMNIA [None]
  - ABDOMINAL PAIN UPPER [None]
  - PRODUCT QUALITY ISSUE [None]
  - URINARY TRACT INFECTION [None]
  - BLADDER DISORDER [None]
  - DYSURIA [None]
  - FAECES DISCOLOURED [None]
  - INAPPROPRIATE SCHEDULE OF DRUG ADMINISTRATION [None]
  - APPETITE DISORDER [None]
  - MALAISE [None]
  - NAUSEA [None]
  - PAIN [None]
  - MICTURITION DISORDER [None]
  - WEIGHT DECREASED [None]
  - HAEMATOCHEZIA [None]
  - FATIGUE [None]
  - AGEUSIA [None]
